FAERS Safety Report 19361238 (Version 1)
Quarter: 2021Q2

REPORT INFORMATION
  Report Type: Spontaneous
  Country: US (occurrence: US)
  Receive Date: 20210601
  Receipt Date: 20210601
  Transmission Date: 20210717
  Serious: Yes (Death)
  Sender: FDA-Public Use
  Company Number: US-CELGENEUS-USA-20210507691

PATIENT
  Age: 57 Year
  Sex: Female

DRUGS (1)
  1. ABRAXANE [Suspect]
     Active Substance: PACLITAXEL
     Indication: BREAST NEOPLASM
     Route: 041

REACTIONS (1)
  - Death [Fatal]

NARRATIVE: CASE EVENT DATE: 20210124
